FAERS Safety Report 7109735-3 (Version None)
Quarter: 2010Q4

REPORT INFORMATION
  Report Type: 
  Country: None (occurrence: None)
  Receive Date: 20101118
  Receipt Date: 20101111
  Transmission Date: 20110411
  Serious: Yes (Death, Hospitalization, Other)
  Sender: FDA-Public Use
  Company Number: BR-ELI_LILLY_AND_COMPANY-BR201011003315

PATIENT
  Sex: Female

DRUGS (1)
  1. FORTEO [Suspect]
     Indication: OSTEOPOROSIS
     Dosage: UNK, UNKNOWN
     Route: 065
     Dates: start: 20080901

REACTIONS (6)
  - ABASIA [None]
  - DYSPNOEA [None]
  - FEELING ABNORMAL [None]
  - PARAPARESIS [None]
  - RESPIRATORY FAILURE [None]
  - SPINAL COLUMN INJURY [None]
